FAERS Safety Report 20871293 (Version 1)
Quarter: 2022Q2

REPORT INFORMATION
  Report Type: Spontaneous
  Country: US (occurrence: None)
  Receive Date: 20220524
  Receipt Date: 20220524
  Transmission Date: 20220721
  Serious: No
  Sender: FDA-Public Use
  Company Number: None

PATIENT
  Age: 35 Year
  Sex: Female
  Weight: 65.25 kg

DRUGS (17)
  1. PAXLOVID [Suspect]
     Active Substance: NIRMATRELVIR\RITONAVIR
     Indication: SARS-CoV-2 test positive
     Dosage: OTHER QUANTITY : 30 TABLET(S);?OTHER FREQUENCY : 3 TABS TWICE DAILY;?
     Route: 048
     Dates: start: 20220520
  2. PAXLOVID [Suspect]
     Active Substance: NIRMATRELVIR\RITONAVIR
     Indication: Immunodeficiency
  3. TREMFYA [Concomitant]
     Active Substance: GUSELKUMAB
  4. IMURAN [Concomitant]
     Active Substance: AZATHIOPRINE
  5. PLAQUENIL [Concomitant]
     Active Substance: HYDROXYCHLOROQUINE SULFATE
  6. PANTOPRAZOLE [Concomitant]
     Active Substance: PANTOPRAZOLE
  7. dueloxetine [Concomitant]
  8. effexxor [Concomitant]
  9. FIORICET [Concomitant]
     Active Substance: ACETAMINOPHEN\BUTALBITAL\CAFFEINE
  10. LORAZEPAM [Concomitant]
     Active Substance: LORAZEPAM
  11. TIZANIDINE [Concomitant]
     Active Substance: TIZANIDINE
  12. TRAMADOL [Concomitant]
     Active Substance: TRAMADOL
  13. ZOFRAN [Concomitant]
     Active Substance: ONDANSETRON HYDROCHLORIDE
  14. IBUPROFEN [Concomitant]
     Active Substance: IBUPROFEN
  15. MIDOL [Concomitant]
     Active Substance: IBUPROFEN
  16. VITAMIN D [Concomitant]
     Active Substance: VITAMIN D NOS
  17. PROBIOTICS NOS [Concomitant]
     Active Substance: PROBIOTICS NOS

REACTIONS (2)
  - Irritability [None]
  - Formication [None]

NARRATIVE: CASE EVENT DATE: 20220521
